FAERS Safety Report 9456038 (Version 2)
Quarter: 2013Q4

REPORT INFORMATION
  Report Type: Spontaneous
  Country: GB (occurrence: GB)
  Receive Date: 20130813
  Receipt Date: 20131129
  Transmission Date: 20140711
  Serious: Yes (Other)
  Sender: FDA-Public Use
  Company Number: PHHY2013GB084816

PATIENT
  Age: 44 Year
  Sex: Female
  Weight: 87 kg

DRUGS (13)
  1. MIRTAZAPINE [Suspect]
     Dosage: 15 MG, UNK
     Route: 048
     Dates: start: 20130514, end: 20130616
  2. ATORVASTATIN [Concomitant]
     Dates: start: 20130403, end: 20130529
  3. CIPROFLOXACIN [Concomitant]
     Dates: start: 20130403, end: 20130529
  4. GABAPENTIN [Concomitant]
     Dates: start: 20130403, end: 20130531
  5. METFORMIN [Concomitant]
     Dates: start: 20130403, end: 20130529
  6. PARACETAMOL [Concomitant]
     Dates: start: 20130403, end: 20130529
  7. QVAR [Concomitant]
     Dates: start: 20130403, end: 20130501
  8. TRAMADOL [Concomitant]
     Dates: start: 20130403, end: 20130531
  9. VENTOLINE [Concomitant]
     Dosage: UNK
     Dates: start: 20130403, end: 20130501
  10. LANSOPRAZOLE [Concomitant]
     Dates: start: 20130415, end: 20130611
  11. LISINOPRIL [Concomitant]
     Dates: start: 20130415, end: 20130513
  12. ORAMORPH [Concomitant]
     Dates: start: 20130415, end: 20130531
  13. VENLALIC XL [Concomitant]
     Dates: start: 20130415, end: 20130515

REACTIONS (1)
  - Hyperglycaemia [Recovered/Resolved]
